FAERS Safety Report 14678212 (Version 1)
Quarter: 2018Q1

REPORT INFORMATION
  Report Type: Spontaneous
  Country: US (occurrence: US)
  Receive Date: 20180326
  Receipt Date: 20180326
  Transmission Date: 20180509
  Serious: Yes (Hospitalization, Other)
  Sender: FDA-Public Use
  Company Number: US-ZYDUS-019436

PATIENT
  Age: 31 Year
  Sex: Male

DRUGS (1)
  1. WARFARIN [Suspect]
     Active Substance: WARFARIN
     Indication: ANTICOAGULANT THERAPY
     Route: 065

REACTIONS (6)
  - Nausea [Recovering/Resolving]
  - Hepatic vein thrombosis [Recovering/Resolving]
  - Oedema peripheral [Recovering/Resolving]
  - Splenomegaly [Recovering/Resolving]
  - Vomiting [Recovering/Resolving]
  - Scrotal swelling [Recovering/Resolving]
